FAERS Safety Report 12137805 (Version 2)
Quarter: 2016Q1

REPORT INFORMATION
  Report Type: Spontaneous
  Country: US (occurrence: US)
  Receive Date: 20160302
  Receipt Date: 20160311
  Transmission Date: 20160526
  Serious: Yes (Hospitalization)
  Sender: FDA-Public Use
  Company Number: US-BAXTER-2016BAX010147

PATIENT
  Sex: Male
  Weight: 91 kg

DRUGS (1)
  1. DIANEAL LOW CALCIUM PERITONEAL DIALYSIS SOLUTION WITH DEXTROSE [Suspect]
     Active Substance: CALCIUM CHLORIDE\DEXTROSE\MAGNESIUM CHLORIDE\SODIUM CHLORIDE\SODIUM LACTATE
     Indication: PERITONEAL DIALYSIS
     Route: 033

REACTIONS (6)
  - Post procedural haemorrhage [Unknown]
  - Abdominal discomfort [Unknown]
  - Internal haemorrhage [Unknown]
  - Vomiting [Unknown]
  - Abdominal distension [Unknown]
  - Constipation [Unknown]

NARRATIVE: CASE EVENT DATE: 20160216
